FAERS Safety Report 7421885-0 (Version None)
Quarter: 2011Q2

REPORT INFORMATION
  Report Type: 
  Country: None (occurrence: None)
  Receive Date: 20110418
  Receipt Date: 20110404
  Transmission Date: 20111010
  Serious: Yes (Other)
  Sender: FDA-Public Use
  Company Number: PHHY2011NL28380

PATIENT
  Sex: Female

DRUGS (2)
  1. EVEROLIMUS [Suspect]
     Dosage: 5 MG, UNK
  2. SANDOSTATIN [Suspect]
     Dosage: 1 DF, TID
     Route: 058

REACTIONS (1)
  - INTESTINAL INFARCTION [None]
